FAERS Safety Report 6751195-6 (Version None)
Quarter: 2010Q2

REPORT INFORMATION
  Report Type: 
  Country: None (occurrence: None)
  Receive Date: 20100602
  Receipt Date: 20100526
  Transmission Date: 20101027
  Serious: Yes (Other)
  Sender: FDA-Public Use
  Company Number: US-JNJFOC-20060906198

PATIENT
  Sex: Female

DRUGS (3)
  1. RISPERDAL [Suspect]
     Indication: POST-TRAUMATIC STRESS DISORDER
  2. RISPERDAL [Suspect]
     Indication: ANXIETY
  3. RISPERDAL [Suspect]
     Indication: DEPRESSION

REACTIONS (6)
  - AMNESTIC DISORDER [None]
  - DIABETES MELLITUS [None]
  - DIABETIC NEUROPATHY [None]
  - FEELING ABNORMAL [None]
  - MUSCULOSKELETAL STIFFNESS [None]
  - ORTHOSTATIC HYPOTENSION [None]
